FAERS Safety Report 11729123 (Version 1)
Quarter: 2015Q4

REPORT INFORMATION
  Report Type: Spontaneous
  Country: US (occurrence: US)
  Receive Date: 20151112
  Receipt Date: 20151112
  Transmission Date: 20160304
  Serious: Yes (Hospitalization, Other)
  Sender: FDA-Public Use
  Company Number: US-BAUSCH-BL-2015-026626

PATIENT
  Age: 65 Year
  Sex: Female

DRUGS (2)
  1. XIFAXAN [Suspect]
     Active Substance: RIFAXIMIN
     Indication: PRODUCT USED FOR UNKNOWN INDICATION
     Route: 065
  2. NEXIUM [Concomitant]
     Active Substance: ESOMEPRAZOLE MAGNESIUM
     Indication: PRODUCT USED FOR UNKNOWN INDICATION

REACTIONS (18)
  - Renal atrophy [Unknown]
  - Tremor [Unknown]
  - Insomnia [Unknown]
  - Thinking abnormal [Unknown]
  - Confusional state [Unknown]
  - Frequent bowel movements [Unknown]
  - Incontinence [Unknown]
  - Depression [Unknown]
  - Amnesia [Unknown]
  - Encephalopathy [Unknown]
  - Acute kidney injury [Unknown]
  - Hepatic cirrhosis [Unknown]
  - Asterixis [Unknown]
  - Varices oesophageal [Unknown]
  - Gastric disorder [Unknown]
  - Nausea [Unknown]
  - Pyelocaliectasis [Unknown]
  - Hepatosplenomegaly [Unknown]

NARRATIVE: CASE EVENT DATE: 200904
